FAERS Safety Report 11335331 (Version 1)
Quarter: 2015Q3

REPORT INFORMATION
  Report Type: Spontaneous
  Country: US (occurrence: None)
  Receive Date: 20150731
  Receipt Date: 20150731
  Transmission Date: 20151125
  Serious: No
  Sender: FDA-Public Use
  Company Number: None

PATIENT
  Age: 64 Year
  Sex: Male

DRUGS (30)
  1. LINEZOLID. [Suspect]
     Active Substance: LINEZOLID
     Indication: OSTEOMYELITIS
     Route: 042
     Dates: start: 20140814, end: 20140912
  2. ASPIRIN. [Concomitant]
     Active Substance: ASPIRIN
  3. CALCITRIOL. [Concomitant]
     Active Substance: CALCITRIOL
  4. METOPROLOL [Concomitant]
     Active Substance: METOPROLOL
  5. BISACODYL. [Concomitant]
     Active Substance: BISACODYL
  6. LEVOFLOXACIN. [Concomitant]
     Active Substance: LEVOFLOXACIN
  7. NIFEDIPINE. [Concomitant]
     Active Substance: NIFEDIPINE
  8. DOCUSATE [Concomitant]
     Active Substance: DOCUSATE
  9. FENTANYL. [Concomitant]
     Active Substance: FENTANYL
  10. HYDRALAZINE [Concomitant]
     Active Substance: HYDRALAZINE HYDROCHLORIDE
  11. MAGNESIUM OXIDE. [Concomitant]
     Active Substance: MAGNESIUM OXIDE
  12. PREDNISONE. [Concomitant]
     Active Substance: PREDNISONE
  13. ALLOPURINOL. [Concomitant]
     Active Substance: ALLOPURINOL
  14. ATORVASTATIN [Concomitant]
     Active Substance: ATORVASTATIN
  15. FUROSEMIDE. [Concomitant]
     Active Substance: FUROSEMIDE
  16. GLIMEPIRIDE. [Concomitant]
     Active Substance: GLIMEPIRIDE
  17. LANSOPRAZOLE. [Concomitant]
     Active Substance: LANSOPRAZOLE
  18. MYCOPHENOLATE [Concomitant]
     Active Substance: MYCOPHENOLIC ACID
  19. PIOGLITAZONE. [Concomitant]
     Active Substance: PIOGLITAZONE
  20. DILTIAZEM [Concomitant]
     Active Substance: DILTIAZEM
  21. GABAPENTIN. [Concomitant]
     Active Substance: GABAPENTIN
  22. HEPARIN [Concomitant]
     Active Substance: HEPARIN SODIUM
  23. SENNA [Concomitant]
     Active Substance: SENNA LEAF\SENNOSIDES\SENNOSIDES A AND B
  24. TEMAZEPAM. [Concomitant]
     Active Substance: TEMAZEPAM
  25. TRAZODONE [Concomitant]
     Active Substance: TRAZODONE HYDROCHLORIDE
  26. MULTIVITAMIN [Concomitant]
     Active Substance: VITAMINS
  27. TACROLIMUS. [Concomitant]
     Active Substance: TACROLIMUS
  28. LOSARTAN. [Concomitant]
     Active Substance: LOSARTAN
  29. METRONIDAZOLE. [Concomitant]
     Active Substance: METRONIDAZOLE
  30. NYSTATIN. [Concomitant]
     Active Substance: NYSTATIN

REACTIONS (2)
  - Bone marrow failure [None]
  - Platelet count decreased [None]

NARRATIVE: CASE EVENT DATE: 20140814
